FAERS Safety Report 5906605-0 (Version None)
Quarter: 2008Q4

REPORT INFORMATION
  Report Type: 
  Country: None (occurrence: None)
  Receive Date: 20081002
  Receipt Date: 20080924
  Transmission Date: 20090506
  Serious: Yes (Other)
  Sender: FDA-Public Use
  Company Number: US-ELI_LILLY_AND_COMPANY-US200809005562

PATIENT
  Sex: Female
  Weight: 129.25 kg

DRUGS (5)
  1. BYETTA [Suspect]
     Indication: TYPE 2 DIABETES MELLITUS
     Dosage: 5 UG, 2/D
     Route: 058
     Dates: start: 20070101, end: 20070101
  2. BYETTA [Suspect]
     Dosage: 10 UG, 2/D
     Route: 058
     Dates: start: 20070101
  3. METFORMIN HCL [Concomitant]
     Indication: TYPE 2 DIABETES MELLITUS
     Dosage: 1000 MG, DAILY (1/D)
     Route: 048
     Dates: start: 20070301
  4. TOPROL-XL [Concomitant]
     Dosage: 150 MG, DAILY (1/D)
  5. TOPROL-XL [Concomitant]
     Dosage: 200 MG, DAILY (1/D)
     Dates: start: 20080901

REACTIONS (7)
  - ATRIAL FIBRILLATION [None]
  - BLOOD PRESSURE DECREASED [None]
  - HEART RATE DECREASED [None]
  - HEART RATE INCREASED [None]
  - HEART RATE IRREGULAR [None]
  - NAUSEA [None]
  - VOMITING [None]
